FAERS Safety Report 8475230 (Version 3)
Quarter: 2014Q3

REPORT INFORMATION
  Report Type: Report from Study
  Country: US (occurrence: US)
  Receive Date: 20120325
  Receipt Date: 20140919
  Transmission Date: 20150326
  Serious: Yes (Hospitalization, Other)
  Sender: FDA-Public Use
  Company Number: US-BRISTOL-MYERS SQUIBB COMPANY-16455909

PATIENT
  Age: 24 Year
  Sex: Male
  Weight: 66.3 kg

DRUGS (1)
  1. IPILIMUMAB [Suspect]
     Active Substance: IPILIMUMAB
     Indication: MALIGNANT MELANOMA
     Dosage: LAST ADMIN 13FEB12?NO OF COURSES 4; REMOVED FROM THE PROTOCOL TREATMENT 13MAR12?720 MG
     Route: 042
     Dates: start: 20111212, end: 20120213

REACTIONS (9)
  - Diarrhoea [Recovered/Resolved]
  - Adrenal insufficiency [Unknown]
  - Hyponatraemia [Unknown]
  - Decreased appetite [Unknown]
  - Hypophysitis [Recovered/Resolved]
  - Pyrexia [Recovered/Resolved]
  - Lung infection [Recovered/Resolved]
  - Nausea [Recovered/Resolved]
  - Colitis [Recovered/Resolved]

NARRATIVE: CASE EVENT DATE: 201203
